FAERS Safety Report 21554824 (Version 1)
Quarter: 2022Q4

REPORT INFORMATION
  Report Type: Spontaneous
  Country: US (occurrence: US)
  Receive Date: 20221104
  Receipt Date: 20221104
  Transmission Date: 20230112
  Serious: Yes (Life-Threatening, Hospitalization, Other)
  Sender: FDA-Public Use
  Company Number: US-MLMSERVICE-20221018-3866284-1

PATIENT
  Age: 37 Year
  Sex: Male

DRUGS (10)
  1. AMITRIPTYLINE [Suspect]
     Active Substance: AMITRIPTYLINE
     Indication: Product used for unknown indication
     Dosage: ONE SIP OF HIS FRIEND^S MAID REGIMEN CONSISTING OF AMITRIPTYLINE 8 G AND
  2. DIGOXIN [Suspect]
     Active Substance: DIGOXIN
     Indication: Product used for unknown indication
     Dosage: ONE SIP OF HIS FRIEND^S MAID REGIMEN CONSISTING OF MICRONIZED DIGOXIN
  3. MORPHINE [Suspect]
     Active Substance: MORPHINE
     Indication: Product used for unknown indication
     Dosage: ONE SIP OF HIS FRIEND^S MAID REGIMEN CONSISTING OF MORPHINE 15 G AND
  4. DIAZEPAM [Suspect]
     Active Substance: DIAZEPAM
     Indication: Product used for unknown indication
     Dosage: ONE SIP OF HIS FRIEND^S MAID REGIMEN CONSISTING OF DIAZEPAM 1 G AND
  5. PHENOBARBITAL [Suspect]
     Active Substance: PHENOBARBITAL
     Indication: Product used for unknown indication
     Dosage: ONE SIP OF HIS FRIEND^S MAID REGIMEN CONSISTING OF PHENOBARBITAL 5 G AND
  6. AMITRIPTYLINE [Suspect]
     Active Substance: AMITRIPTYLINE
     Indication: Product used for unknown indication
     Dosage: (DDMAPH) MIXED IN AT LEAST 4 OZ OF SPORTS DRINK
  7. DIGOXIN [Suspect]
     Active Substance: DIGOXIN
     Indication: Product used for unknown indication
     Dosage: 100MG AND (DDMAPH) MIXED IN AT LEAST 4 OZ OF SPORTS DRINK
  8. MORPHINE [Suspect]
     Active Substance: MORPHINE
     Indication: Product used for unknown indication
     Dosage: (DDMAPH) MIXED IN AT LEAST 4 OZ OF SPORTS DRINK
  9. PHENOBARBITAL [Suspect]
     Active Substance: PHENOBARBITAL
     Indication: Product used for unknown indication
     Dosage: (DDMAPH) MIXED IN AT LEAST 4 OZ OF SPORTS DRINK
  10. DIAZEPAM [Suspect]
     Active Substance: DIAZEPAM
     Indication: Product used for unknown indication
     Dosage: (DDMAPH) MIXED IN AT LEAST 4 OZ OF SPORTS DRINK

REACTIONS (7)
  - Pneumonia aspiration [Recovered/Resolved]
  - Accidental exposure to product [Recovered/Resolved]
  - Coma [Recovered/Resolved]
  - Blood potassium increased [Recovered/Resolved]
  - Electrocardiogram PR prolongation [Recovered/Resolved]
  - Electrocardiogram QRS complex prolonged [Recovered/Resolved]
  - Acute kidney injury [Unknown]
